FAERS Safety Report 7671221-X (Version None)
Quarter: 2011Q3

REPORT INFORMATION
  Report Type: 
  Country: None (occurrence: None)
  Receive Date: 20110809
  Receipt Date: 20100806
  Transmission Date: 20111222
  Serious: Yes (Other)
  Sender: FDA-Public Use
  Company Number: US-BAYER-200930660NA

PATIENT
  Age: 55 Year
  Sex: Female
  Weight: 76 kg

DRUGS (74)
  1. MULTIHANCE [Suspect]
     Indication: IMAGING PROCEDURE
  2. LIPITOR [Concomitant]
     Dates: start: 20090401
  3. PROVIGIL [Concomitant]
  4. CATAPRES [Concomitant]
     Dates: start: 20060901
  5. PROCRIT [Concomitant]
     Dates: start: 20070201, end: 20070701
  6. SYNTHROID [Concomitant]
  7. LASIX [Concomitant]
  8. LINEZOLID [Concomitant]
  9. CALCIUM CARBONATE [Concomitant]
  10. CLONIDINE [Concomitant]
  11. CATAPRES [Concomitant]
  12. OMNISCAN [Suspect]
     Indication: NUCLEAR MAGNETIC RESONANCE IMAGING BRAIN
     Dosage: 15 ML (DAILY DOSE), ONCE, INTRAVENOUS
     Route: 042
     Dates: start: 20050722, end: 20050722
  13. PROHANCE [Suspect]
     Indication: IMAGING PROCEDURE
  14. DILANTIN [Concomitant]
  15. AVELOX [Concomitant]
  16. RESTORIL [Concomitant]
  17. COMPAZINE [Concomitant]
  18. TESSALON [Concomitant]
  19. METOPROLOL TARTRATE [Concomitant]
  20. MAGNEVIST [Suspect]
     Dosage: UNK
     Dates: start: 20051114, end: 20051114
  21. LEVOTHYROXINE SODIUM [Concomitant]
     Route: 048
  22. SLOW-FE [Concomitant]
     Dosage: 1 TABLET
     Route: 048
     Dates: start: 20060201
  23. VYTORIN [Concomitant]
     Dates: start: 20051201, end: 20080401
  24. REGLAN [Concomitant]
  25. NYSTATIN [Concomitant]
  26. ASPIRIN [Concomitant]
  27. VALTREX [Concomitant]
  28. RENOVA [Concomitant]
  29. MELPHALAN HYDROCHLORIDE [Concomitant]
  30. TEMAZEPAM [Concomitant]
  31. ZOFRAN [Concomitant]
  32. ALBUTEROL INHALER [Concomitant]
  33. TORADOL [Concomitant]
  34. ZINC OXIDE [ZINC OXIDE] [Concomitant]
  35. ACYCLOVIR [Concomitant]
  36. CORTISONE ACETATE [Concomitant]
  37. DIOVAN [Concomitant]
  38. LIPITOR [Concomitant]
  39. MAGNEVIST [Suspect]
     Dates: start: 20050902, end: 20050902
  40. DIOVAN [Concomitant]
     Dates: start: 20080901, end: 20081001
  41. CLONIDINE [Concomitant]
     Dates: start: 20060401, end: 20060801
  42. CHEMOTHERAPEUTICS NOS [Concomitant]
     Dates: start: 20040101
  43. WELLBUTRIN SR [Concomitant]
  44. ZOCOR [Concomitant]
  45. VITAMIN D [Concomitant]
  46. TOPROL-XL [Concomitant]
  47. MAGNEVIST [Suspect]
     Indication: NUCLEAR MAGNETIC RESONANCE IMAGING ABDOMINAL
     Dosage: 20 ML (DAILY DOSE), ONCE,
     Dates: start: 20041109, end: 20041109
  48. OPTIMARK [Suspect]
     Indication: IMAGING PROCEDURE
  49. CALCITRIOL [Concomitant]
  50. ADRIAMYCIN PFS [Concomitant]
  51. GRANISETRON HYDROCHLORIDE [Concomitant]
  52. METOCLOPRAMIDE [Concomitant]
  53. OPIUM TINCTURE [Concomitant]
  54. SLOW RELEASE IRON [Concomitant]
  55. VYTORIN [Concomitant]
  56. DILANTIN [Concomitant]
  57. VELCADE [Concomitant]
     Dates: start: 20040101, end: 20050101
  58. METOPROLOL TARTRATE [Concomitant]
  59. DEXAMETHASONE [Concomitant]
  60. LEXAPRO [Concomitant]
  61. TOPROL-XL [Concomitant]
     Dates: start: 20051201, end: 20080501
  62. SUCRALFATE [Concomitant]
  63. BUMEX [Concomitant]
  64. CYMBALTA [Concomitant]
  65. MAGNEVIST [Suspect]
     Dosage: UNK
     Dates: start: 20050819, end: 20050819
  66. DOXIL [Concomitant]
     Dates: start: 20040101, end: 20050101
  67. FUROSEMIDE [Concomitant]
  68. PROTONIX [Concomitant]
  69. COUMADIN [Concomitant]
  70. EFFEXOR XR [Concomitant]
  71. FLUCONAZOLE [Concomitant]
  72. PROCARDIA XL [Concomitant]
  73. PROCRIT [Concomitant]
  74. ASCORBIC ACID [Concomitant]

REACTIONS (21)
  - OEDEMA [None]
  - SKIN ULCER [None]
  - SKIN INDURATION [None]
  - OEDEMA PERIPHERAL [None]
  - SKIN HYPERTROPHY [None]
  - RASH PAPULAR [None]
  - MOBILITY DECREASED [None]
  - NEPHROGENIC SYSTEMIC FIBROSIS [None]
  - PAIN [None]
  - ERYTHEMA [None]
  - HYPERKERATOSIS [None]
  - FIBROSIS [None]
  - SKIN EXFOLIATION [None]
  - PETECHIAE [None]
  - SKIN ATROPHY [None]
  - SKIN DISORDER [None]
  - SKIN TIGHTNESS [None]
  - IMPAIRED HEALING [None]
  - DRY SKIN [None]
  - PRURITUS [None]
  - MUSCULAR WEAKNESS [None]
